FAERS Safety Report 25087794 (Version 1)
Quarter: 2025Q1

REPORT INFORMATION
  Report Type: Spontaneous
  Country: GB (occurrence: GB)
  Receive Date: 20250318
  Receipt Date: 20250318
  Transmission Date: 20250409
  Serious: Yes (Other)
  Sender: CELLTRION
  Company Number: None

PATIENT

DRUGS (1)
  1. INFLIXIMAB [Suspect]
     Active Substance: INFLIXIMAB
     Indication: Product used for unknown indication

REACTIONS (5)
  - Arthritis [Unknown]
  - Osteoarthritis [Unknown]
  - Unevaluable event [Unknown]
  - Insomnia [Unknown]
  - Drug specific antibody present [Unknown]
